FAERS Safety Report 9432905 (Version 1)
Quarter: 2013Q3

REPORT INFORMATION
  Report Type: Spontaneous
  Country: US (occurrence: US)
  Receive Date: 20130731
  Receipt Date: 20130731
  Transmission Date: 20140515
  Serious: Yes (Hospitalization, Other)
  Sender: FDA-Public Use
  Company Number: US-UCBSA-089919

PATIENT
  Age: 57 Year
  Sex: Female

DRUGS (4)
  1. CIMZIA [Suspect]
     Indication: CROHN^S DISEASE
     Route: 058
     Dates: start: 201303
  2. ASPIRIN [Concomitant]
     Indication: PROPHYLAXIS
     Dosage: BABY ASA DAILY
     Route: 048
     Dates: start: 2013
  3. PREMPRO [Concomitant]
     Indication: MENOPAUSAL SYMPTOMS
     Route: 048
  4. ATENOLOL [Concomitant]
     Indication: MITRAL VALVE PROLAPSE
     Route: 048

REACTIONS (7)
  - Small intestinal obstruction [Recovered/Resolved]
  - Adhesion [Recovered/Resolved]
  - Sepsis [Recovered/Resolved]
  - Pulseless electrical activity [Recovered/Resolved]
  - Myocardial infarction [Recovered/Resolved]
  - Cerebrovascular accident [Recovered/Resolved]
  - Abdominal hernia [Recovering/Resolving]
